FAERS Safety Report 6350834-1 (Version None)
Quarter: 2009Q3

REPORT INFORMATION
  Report Type: 
  Country: None (occurrence: None)
  Receive Date: 20090912
  Receipt Date: 20090622
  Transmission Date: 20100115
  Serious: No
  Sender: FDA-Public Use
  Company Number: US-ABBOTT-07P-163-0368129-00

PATIENT
  Sex: Female
  Weight: 53.572 kg

DRUGS (9)
  1. HUMIRA [Suspect]
     Indication: CROHN'S DISEASE
     Route: 058
     Dates: start: 20070510, end: 20070510
  2. HUMIRA [Suspect]
     Route: 058
     Dates: start: 20070517, end: 20070517
  3. HUMIRA [Suspect]
     Route: 058
     Dates: start: 20070524
  4. PREDNISONE [Concomitant]
     Indication: CROHN'S DISEASE
     Route: 048
  5. PREDNISONE [Concomitant]
     Indication: COLITIS ULCERATIVE
  6. MESALAZINE [Concomitant]
     Indication: CROHN'S DISEASE
     Route: 048
  7. MESALAZINE [Concomitant]
     Indication: COLITIS ULCERATIVE
  8. MESALAZINE [Concomitant]
     Route: 048
  9. MESALAZINE [Concomitant]

REACTIONS (5)
  - CANDIDIASIS [None]
  - DRUG DELIVERY SYSTEM MALFUNCTION [None]
  - FATIGUE [None]
  - INCORRECT DOSE ADMINISTERED [None]
  - MUSCULAR WEAKNESS [None]
